FAERS Safety Report 7202139-4 (Version None)
Quarter: 2010Q4

REPORT INFORMATION
  Report Type: 
  Country: None (occurrence: None)
  Receive Date: 20101229
  Receipt Date: 20101216
  Transmission Date: 20110411
  Serious: Yes (Hospitalization)
  Sender: FDA-Public Use
  Company Number: PHHY2010BE82480

PATIENT
  Sex: Female

DRUGS (6)
  1. RASILEZ [Suspect]
     Indication: HYPERTENSION
     Dosage: 150 MG
     Dates: start: 20080101, end: 20101201
  2. RASILEZ [Suspect]
     Dosage: 300 MG
  3. BISOPROLOL [Concomitant]
     Indication: HYPERTENSION
     Dosage: TWICE DAILY
  4. LISINOPRIL [Concomitant]
  5. ANTIHISTAMINICS [Concomitant]
  6. CORTICOSTEROIDS [Concomitant]

REACTIONS (9)
  - ARRHYTHMIA [None]
  - ATRIAL FIBRILLATION [None]
  - CONFUSIONAL STATE [None]
  - ECZEMA [None]
  - FEELING ABNORMAL [None]
  - HYPERTENSION [None]
  - HYPOTENSION [None]
  - SKIN ULCER [None]
  - URTICARIA [None]
